FAERS Safety Report 7592853-3 (Version None)
Quarter: 2011Q3

REPORT INFORMATION
  Report Type: 
  Country: None (occurrence: None)
  Receive Date: 20110706
  Receipt Date: 20110704
  Transmission Date: 20111222
  Serious: Yes (Other)
  Sender: FDA-Public Use
  Company Number: US-PFIZER INC-2011149126

PATIENT
  Sex: Male
  Weight: 94.8 kg

DRUGS (6)
  1. CRESTOR [Concomitant]
     Indication: BLOOD CHOLESTEROL ABNORMAL
     Dosage: UNK
  2. CHANTIX [Suspect]
     Indication: SMOKING CESSATION THERAPY
     Dosage: 0.5 MG, 1X/DAY
     Route: 048
     Dates: start: 20110401, end: 20110101
  3. INSULIN [Concomitant]
     Indication: DIABETES MELLITUS
     Dosage: UNK
  4. AVODART [Concomitant]
     Indication: HERNIA
     Dosage: UNK
  5. CHANTIX [Suspect]
     Dosage: 1 MG, 2X/DAY
     Dates: start: 20110601
  6. CARDIZEM [Concomitant]
     Indication: CARDIAC DISORDER
     Dosage: UNK

REACTIONS (2)
  - SUICIDAL IDEATION [None]
  - DEPRESSION [None]
